FAERS Safety Report 24788973 (Version 1)
Quarter: 2024Q4

REPORT INFORMATION
  Report Type: Spontaneous
  Country: GB (occurrence: GB)
  Receive Date: 20241230
  Receipt Date: 20241230
  Transmission Date: 20250114
  Serious: Yes (Hospitalization, Other)
  Sender: ADVANZ PHARMA
  Company Number: None

PATIENT

DRUGS (12)
  1. PREDNISOLONE [Suspect]
     Active Substance: PREDNISOLONE
     Dosage: 40 MG (TABLET)
  2. TIOTROPIUM [Concomitant]
     Active Substance: TIOTROPIUM
     Dosage: 2 PUFF, QD (2.5 MICROGRAMS / DOSE SOLUTION FOR INHALATION CARTRIDGE WITH DEVICE CFC FREE TWO PUFFS T
  3. SERTRALINE [Concomitant]
     Active Substance: SERTRALINE HYDROCHLORIDE
     Dosage: 1 DOSAGE FORM, QD (100 MG TABLETS ONE TO BE TAKEN EACH DAY)
  4. NICOTINE [Concomitant]
     Active Substance: NICOTINE
     Dosage: 15 MG
  5. LANSOPRAZOLE [Concomitant]
     Active Substance: LANSOPRAZOLE
     Dosage: 30 MG, QD (30MG OD)
  6. ENOXAPARIN [Concomitant]
     Active Substance: ENOXAPARIN
     Dosage: 40 MG, QD (40MG OD)
  7. IPRATROPIUM [Concomitant]
     Active Substance: IPRATROPIUM
     Dosage: 500 UG, QID (500MCG QDS)
  8. ALBUTEROL [Concomitant]
     Active Substance: ALBUTEROL
     Dosage: UNK (100 MICROGRAMS / DOSE EASI-BREATHE INHALER ONE OR TWO PUFFS TO BE INHALED UP TO FOUR TIMES A DA
  9. ACETAMINOPHEN [Concomitant]
     Active Substance: ACETAMINOPHEN
     Dosage: UNK
  10. ETANERCEPT [Concomitant]
     Active Substance: ETANERCEPT
     Dosage: 50 MG, WEEKLY ((50MG SC WEEKLY ON A MONDAY.))
     Route: 058
     Dates: start: 20241213
  11. ALBUTEROL [Concomitant]
     Active Substance: ALBUTEROL
     Dosage: 5 MG, 5/DAY
  12. SYMBICORT [Concomitant]
     Active Substance: BUDESONIDE\FORMOTEROL FUMARATE DIHYDRATE
     Dosage: 2 PUFF, BID (400 / 12 TURBOHALER 2 PUFFS TWICE A DAY)

REACTIONS (2)
  - Delirium [Unknown]
  - Confusional state [Recovered/Resolved]
